FAERS Safety Report 16938430 (Version 7)
Quarter: 2021Q3

REPORT INFORMATION
  Report Type: Report from Study
  Country: US (occurrence: US)
  Receive Date: 20191019
  Receipt Date: 20210826
  Transmission Date: 20211014
  Serious: Yes (Other)
  Sender: FDA-Public Use
  Company Number: NVSC2019US005699

PATIENT
  Age: 38 Year
  Sex: Female
  Weight: 69.39 kg

DRUGS (8)
  1. TREPROSTINIL. [Suspect]
     Active Substance: TREPROSTINIL
     Dosage: 147 UNK (NG/KG/M IN)
     Route: 042
     Dates: start: 20190410
  2. TREPROSTINIL. [Suspect]
     Active Substance: TREPROSTINIL
     Dosage: 147 UNK (NG/KG/M IN)
     Route: 042
     Dates: start: 20190410
  3. TREPROSTINIL. [Suspect]
     Active Substance: TREPROSTINIL
     Dosage: 44 UNK (NG/KG/MIN CONTINUOUS)
     Route: 065
     Dates: start: 20191004
  4. TREPROSTINIL. [Suspect]
     Active Substance: TREPROSTINIL
     Dosage: 151 UNK, CONT (NG/KG/MIN) STRENGTH 1MG/ML)
     Route: 042
     Dates: start: 20191004
  5. REMODULIN [Suspect]
     Active Substance: TREPROSTINIL
     Indication: PRODUCT USED FOR UNKNOWN INDICATION
     Dosage: UNK
     Route: 065
  6. OPSUMIT [Concomitant]
     Active Substance: MACITENTAN
     Indication: PRODUCT USED FOR UNKNOWN INDICATION
     Dosage: UNK
     Route: 065
  7. TREPROSTINIL. [Suspect]
     Active Substance: TREPROSTINIL
     Indication: PULMONARY ARTERIAL HYPERTENSION
     Dosage: 144 UNK (NG/KG/M IN) (STRENGTH: 10MG/ML)
     Route: 042
     Dates: start: 20190410
  8. TREPROSTINIL. [Suspect]
     Active Substance: TREPROSTINIL
     Dosage: 151 UNK (STRENGTH: 5 MG/ML) (NG/KG/MIN) (CONT)
     Route: 042
     Dates: start: 20191004

REACTIONS (12)
  - Cellulitis [Unknown]
  - Hypersensitivity [Unknown]
  - Haemorrhage [Unknown]
  - Concomitant disease aggravated [Unknown]
  - Arthritis [Unknown]
  - Urticaria [Unknown]
  - Injection site pain [Unknown]
  - Connective tissue disorder [Unknown]
  - Pain [Unknown]
  - Malaise [Unknown]
  - Joint lock [Unknown]
  - Fall [Unknown]

NARRATIVE: CASE EVENT DATE: 20200412
